FAERS Safety Report 10758928 (Version 1)
Quarter: 2015Q1

REPORT INFORMATION
  Report Type: Spontaneous
  Country: US (occurrence: US)
  Receive Date: 20150203
  Receipt Date: 20150203
  Transmission Date: 20150721
  Serious: Yes (Hospitalization)
  Sender: FDA-Public Use
  Company Number: US-PFIZER INC-2015040570

PATIENT
  Age: 66 Year
  Sex: Female
  Weight: 73 kg

DRUGS (2)
  1. ADVIL [Suspect]
     Active Substance: IBUPROFEN
     Indication: PAIN
  2. ADVIL [Suspect]
     Active Substance: IBUPROFEN
     Indication: PYREXIA
     Dosage: 200 MG, 2 LIQUIGELS EVERY 4-6 HOURS FOR 3-4 DAYS
     Dates: end: 201501

REACTIONS (2)
  - Anaphylactic shock [Unknown]
  - Overdose [Unknown]

NARRATIVE: CASE EVENT DATE: 201501
